FAERS Safety Report 16339148 (Version 3)
Quarter: 2024Q2

REPORT INFORMATION
  Report Type: Spontaneous
  Country: IT (occurrence: IT)
  Receive Date: 20190521
  Receipt Date: 20240625
  Transmission Date: 20240716
  Serious: Yes (Other)
  Sender: FDA-Public Use
  Company Number: IT-BRISTOL-MYERS SQUIBB COMPANY-BMS-2019-049396

PATIENT
  Age: 40 Year
  Sex: Female

DRUGS (6)
  1. ATAZANAVIR SULFATE [Interacting]
     Active Substance: ATAZANAVIR SULFATE
     Indication: HIV infection
     Dosage: 300 MILLIGRAM
  2. RITONAVIR [Interacting]
     Active Substance: RITONAVIR
     Indication: HIV infection
     Dosage: 100 MILLIGRAM
  3. TENOFOVIR [Interacting]
     Active Substance: TENOFOVIR
     Indication: HIV infection
     Dosage: 245 MILLIGRAM
  4. HERBALS [Interacting]
     Active Substance: HERBALS
     Indication: HIV infection
     Dosage: 450 MILLIGRAM, BID
  5. HERBALS [Interacting]
     Active Substance: HERBALS
     Indication: Obesity
  6. EMTRICITABINE [Interacting]
     Active Substance: EMTRICITABINE
     Indication: HIV infection
     Dosage: 200 MILLIGRAM

REACTIONS (2)
  - Virologic failure [Recovered/Resolved]
  - Drug interaction [Unknown]
